FAERS Safety Report 20993968 (Version 3)
Quarter: 2022Q2

REPORT INFORMATION
  Report Type: Spontaneous
  Country: JP (occurrence: JP)
  Receive Date: 20220622
  Receipt Date: 20220629
  Transmission Date: 20220721
  Serious: Yes (Disabling)
  Sender: FDA-Public Use
  Company Number: JP-Eisai-202203245_LEN-EC_P_1

PATIENT
  Age: 75 Year
  Sex: Female
  Weight: 45 kg

DRUGS (4)
  1. LENVIMA [Suspect]
     Active Substance: LENVATINIB
     Indication: Endometrial cancer
     Route: 048
     Dates: start: 202204, end: 2022
  2. LENVIMA [Suspect]
     Active Substance: LENVATINIB
     Dosage: 2 DAYS ON/1 DAY OFF SCHEDULE
     Route: 048
     Dates: start: 2022, end: 2022
  3. LENVIMA [Suspect]
     Active Substance: LENVATINIB
     Route: 048
     Dates: start: 2022, end: 2022
  4. KEYTRUDA [Suspect]
     Active Substance: PEMBROLIZUMAB
     Indication: Endometrial cancer
     Route: 041
     Dates: start: 202204, end: 2022

REACTIONS (1)
  - Cerebral infarction [Unknown]

NARRATIVE: CASE EVENT DATE: 20220601
